FAERS Safety Report 13012568 (Version 1)
Quarter: 2016Q4

REPORT INFORMATION
  Report Type: Spontaneous
  Country: US (occurrence: US)
  Receive Date: 20161209
  Receipt Date: 20161209
  Transmission Date: 20170207
  Serious: No
  Sender: FDA-Public Use
  Company Number: US-TEVA-712749ACC

PATIENT
  Age: 22 Year
  Sex: Female
  Weight: 49.94 kg

DRUGS (3)
  1. PLAN B ONE-STEP [Suspect]
     Active Substance: LEVONORGESTREL
     Indication: POST COITAL CONTRACEPTION
     Dates: start: 20161103, end: 20161103
  2. MIRALAX [Concomitant]
     Active Substance: POLYETHYLENE GLYCOL 3350
     Indication: ABDOMINAL DISCOMFORT
  3. LACTOSE [Concomitant]
     Active Substance: LACTOSE
     Indication: LACTOSE INTOLERANCE

REACTIONS (4)
  - Asthenia [Unknown]
  - Menstruation irregular [Not Recovered/Not Resolved]
  - Vomiting [Recovered/Resolved]
  - Lethargy [Unknown]

NARRATIVE: CASE EVENT DATE: 20161104
